FAERS Safety Report 24158103 (Version 2)
Quarter: 2025Q1

REPORT INFORMATION
  Report Type: Spontaneous
  Country: US (occurrence: US)
  Receive Date: 20240731
  Receipt Date: 20250227
  Transmission Date: 20250409
  Serious: Yes (Death, Other)
  Sender: IPSEN BIOPHARMACEUTICALS, INC.
  Company Number: US-IPSEN Group, Research and Development-2024-15098

PATIENT
  Age: 4 Year
  Sex: Female
  Weight: 21.7 kg

DRUGS (10)
  1. TAZVERIK [Suspect]
     Active Substance: TAZEMETOSTAT HYDROBROMIDE
     Indication: Product used for unknown indication
     Route: 048
     Dates: start: 202406
  2. OXYCODONE [Concomitant]
     Active Substance: OXYCODONE
  3. ZOFRAN [Concomitant]
     Active Substance: ONDANSETRON HYDROCHLORIDE
  4. MIRALAX [Concomitant]
     Active Substance: POLYETHYLENE GLYCOL 3350
  5. DEXAMETHASONE [Concomitant]
     Active Substance: DEXAMETHASONE
  6. SENNA [Concomitant]
     Active Substance: SENNOSIDES
  7. BISACODYL [Concomitant]
     Active Substance: BISACODYL
  8. ALBUTEROL [Concomitant]
     Active Substance: ALBUTEROL
  9. ACETAZOLAMIDE [Concomitant]
     Active Substance: ACETAZOLAMIDE
  10. MELATONIN [Concomitant]
     Active Substance: MELATONIN

REACTIONS (2)
  - Death [Fatal]
  - Product use issue [Unknown]

NARRATIVE: CASE EVENT DATE: 20240601
